FAERS Safety Report 4553743-3 (Version None)
Quarter: 2005Q1

REPORT INFORMATION
  Report Type: 
  Country: None (occurrence: None)
  Receive Date: 20050114
  Receipt Date: 20050114
  Transmission Date: 20050727
  Serious: Yes (Life-Threatening, Hospitalization)
  Sender: FDA-Public Use
  Company Number: None

PATIENT
  Age: 49 Year
  Sex: Male
  Weight: 102.5129 kg

DRUGS (6)
  1. CARMUSTINE [Suspect]
     Indication: ASTROCYTOMA
     Dosage: 510 MG  1,2,3,56  INTRAVENOUS
     Route: 042
     Dates: start: 20041130, end: 20041202
  2. DECADRON [Suspect]
     Indication: ASTROCYTOMA
     Dosage: 14 MG  DAY ORAL
     Route: 048
     Dates: start: 20041130, end: 20050112
  3. PROTONIX [Concomitant]
  4. LANTUS [Concomitant]
  5. DILANTIN [Concomitant]
  6. STOOL SOFTENER [Concomitant]

REACTIONS (7)
  - BRONCHITIS [None]
  - DEEP VEIN THROMBOSIS [None]
  - NASAL CONGESTION [None]
  - NEUTROPENIA [None]
  - PULMONARY EMBOLISM [None]
  - RHINORRHOEA [None]
  - SINUS HEADACHE [None]
